FAERS Safety Report 6651008-7 (Version None)
Quarter: 2010Q1

REPORT INFORMATION
  Report Type: 
  Country: None (occurrence: None)
  Receive Date: 20100325
  Receipt Date: 20100318
  Transmission Date: 20100710
  Serious: Yes (Other)
  Sender: FDA-Public Use
  Company Number: FR-SANOFI-AVENTIS-2010SA016677

PATIENT

DRUGS (1)
  1. ARAVA [Suspect]

REACTIONS (1)
  - MACULOPATHY [None]
